FAERS Safety Report 5815150-2 (Version None)
Quarter: 2008Q3

REPORT INFORMATION
  Report Type: 
  Country: None (occurrence: None)
  Receive Date: 20080718
  Receipt Date: 20080708
  Transmission Date: 20090109
  Serious: Yes (Life-Threatening, Hospitalization, Other)
  Sender: FDA-Public Use
  Company Number: JP-SANOFI-SYNTHELABO-A01200807762

PATIENT
  Sex: Male
  Weight: 69 kg

DRUGS (17)
  1. P GUARD [Concomitant]
     Indication: CANCER PAIN
     Route: 048
     Dates: start: 20080623
  2. MAGNESIUM OXIDE [Concomitant]
     Indication: GASTRIC ULCER
     Route: 048
     Dates: start: 20080623
  3. CIPROFLOXACIN HCL [Concomitant]
     Indication: INFECTION PROPHYLAXIS
     Route: 048
     Dates: start: 20080623, end: 20080626
  4. PACIF [Concomitant]
     Indication: CANCER PAIN
     Route: 048
     Dates: start: 20080607, end: 20080623
  5. MEILAX [Concomitant]
     Indication: INSOMNIA
     Route: 048
     Dates: start: 20080603, end: 20080617
  6. MEVALOTIN [Concomitant]
     Indication: HYPERLIPIDAEMIA
     Route: 048
     Dates: start: 20080603, end: 20080617
  7. MICARDIS [Concomitant]
     Indication: HYPERTENSION
     Route: 048
     Dates: start: 20080603
  8. PARIET [Concomitant]
     Indication: GASTRIC ULCER
     Route: 048
     Dates: start: 20080603, end: 20080617
  9. HARNAL D [Concomitant]
     Indication: BENIGN PROSTATIC HYPERPLASIA
     Route: 048
     Dates: start: 20080602
  10. MUCOSTA [Concomitant]
     Indication: GASTRIC ULCER
     Route: 048
     Dates: start: 20080514
  11. LOBU [Concomitant]
     Indication: ANALGESIA
     Route: 048
     Dates: start: 20080514
  12. GLYSENNID [Concomitant]
     Indication: DIARRHOEA
     Route: 048
     Dates: start: 20080507
  13. AZD2171 [Suspect]
     Dosage: UNK
     Route: 048
     Dates: start: 20080526, end: 20080627
  14. FLUOROURACIL [Suspect]
     Dosage: 400 MG/M2 IN BOLUS THEN 2400 MG/M2 AS INFUSION
     Route: 040
     Dates: start: 20080609, end: 20080609
  15. FLUOROURACIL [Suspect]
     Dosage: 400 MG/M2 IN BOLUS THEN 2400 MG/M2 AS INFUSION
     Route: 041
     Dates: start: 20080609, end: 20080610
  16. ISOVORIN [Suspect]
     Route: 041
     Dates: start: 20080609, end: 20080609
  17. ELPLAT [Suspect]
     Indication: COLON CANCER
     Route: 041
     Dates: start: 20080609, end: 20080609

REACTIONS (3)
  - LARGE INTESTINE PERFORATION [None]
  - NEUTROPHIL COUNT DECREASED [None]
  - WHITE BLOOD CELL COUNT DECREASED [None]
